FAERS Safety Report 10395284 (Version 2)
Quarter: 2014Q3

REPORT INFORMATION
  Report Type: Report from Study
  Country: US (occurrence: US)
  Receive Date: 20140820
  Receipt Date: 20140910
  Transmission Date: 20150326
  Serious: Yes (Death)
  Sender: FDA-Public Use
  Company Number: PHEH2014US016436

PATIENT
  Sex: Male

DRUGS (1)
  1. ILARIS [Suspect]
     Active Substance: CANAKINUMAB
     Indication: IDIOPATHIC URTICARIA
     Dosage: 150 MG, EVERY 8 WEEKS
     Route: 058
     Dates: start: 20121116

REACTIONS (1)
  - Death [Fatal]
